FAERS Safety Report 12558575 (Version 2)
Quarter: 2016Q3

REPORT INFORMATION
  Report Type: Spontaneous
  Country: AT (occurrence: AT)
  Receive Date: 20160714
  Receipt Date: 20160826
  Transmission Date: 20161109
  Serious: Yes (Hospitalization, Other)
  Sender: FDA-Public Use
  Company Number: AT-AMGEN GMBH-AUTSP2016089073

PATIENT
  Age: 3 Year
  Sex: Male
  Weight: 13.6 kg

DRUGS (1)
  1. NEULASTA [Suspect]
     Active Substance: PEGFILGRASTIM
     Indication: WHITE BLOOD CELL COUNT DECREASED
     Dosage: 2 MG, UNK
     Route: 058
     Dates: start: 20160612

REACTIONS (8)
  - General physical health deterioration [Recovered/Resolved]
  - Body temperature increased [Unknown]
  - Skin discolouration [Recovered/Resolved]
  - Agitation [Recovered/Resolved]
  - Haematoma [Unknown]
  - Chills [Recovered/Resolved]
  - Crying [Recovered/Resolved]
  - White blood cell count decreased [Unknown]

NARRATIVE: CASE EVENT DATE: 20160612
